FAERS Safety Report 7830180-7 (Version None)
Quarter: 2011Q4

REPORT INFORMATION
  Report Type: 
  Country: None (occurrence: None)
  Receive Date: 20111021
  Receipt Date: 20111006
  Transmission Date: 20120403
  Serious: Yes (Other)
  Sender: FDA-Public Use
  Company Number: NL-SANOFI-AVENTIS-2011SA066529

PATIENT
  Age: 27 Year
  Sex: Female

DRUGS (1)
  1. DESMOPRESSIN ACETATE [Suspect]
     Route: 048

REACTIONS (6)
  - ARTERIAL THROMBOSIS [None]
  - GALLBLADDER DISORDER [None]
  - OVERDOSE [None]
  - DIARRHOEA [None]
  - INTESTINAL ISCHAEMIA [None]
  - ABDOMINAL PAIN [None]
